FAERS Safety Report 12997000 (Version 3)
Quarter: 2017Q1

REPORT INFORMATION
  Report Type: Spontaneous
  Country: GB (occurrence: GB)
  Receive Date: 20161205
  Receipt Date: 20170103
  Transmission Date: 20170428
  Serious: Yes (Death, Life-Threatening, Hospitalization)
  Sender: FDA-Public Use
  Company Number: GB-ACCORD-046182

PATIENT
  Age: 74 Year
  Sex: Male

DRUGS (2)
  1. METHOTREXATE. [Suspect]
     Active Substance: METHOTREXATE
     Indication: PSORIATIC ARTHROPATHY
  2. FOLIC ACID. [Concomitant]
     Active Substance: FOLIC ACID

REACTIONS (4)
  - Septic shock [Fatal]
  - Dyspnoea [Unknown]
  - Peritonitis [Fatal]
  - Duodenal perforation [Fatal]
